APPROVED DRUG PRODUCT: OLOPATADINE HYDROCHLORIDE
Active Ingredient: OLOPATADINE HYDROCHLORIDE
Strength: EQ 0.7% BASE
Dosage Form/Route: SOLUTION/DROPS;OPHTHALMIC
Application: A213514 | Product #001
Applicant: GLAND PHARMA LTD
Approved: Jan 6, 2026 | RLD: No | RS: No | Type: OTC